FAERS Safety Report 8390474-6 (Version None)
Quarter: 2012Q2

REPORT INFORMATION
  Report Type: 
  Country: None (occurrence: None)
  Receive Date: 20120517
  Receipt Date: 20120510
  Transmission Date: 20120825
  Serious: Yes (Other)
  Sender: FDA-Public Use
  Company Number: 2010SP020395

PATIENT
  Age: 83 Year
  Sex: Female

DRUGS (6)
  1. NASONEX [Suspect]
     Indication: NASAL CONGESTION
     Dosage: 2 DF;QD;NAS
     Route: 045
     Dates: start: 20090319, end: 20090324
  2. COZAAR [Concomitant]
  3. FLOVENT [Concomitant]
  4. OMEPRAZOLE [Concomitant]
  5. WARFARIN SODIUM [Concomitant]
  6. EZETIMIBE [Concomitant]

REACTIONS (2)
  - BLISTER [None]
  - DYSURIA [None]
